FAERS Safety Report 13052074 (Version 1)
Quarter: 2016Q4

REPORT INFORMATION
  Report Type: Spontaneous
  Country: BR (occurrence: BR)
  Receive Date: 20161221
  Receipt Date: 20161221
  Transmission Date: 20170207
  Serious: Yes (Life-Threatening, Hospitalization, Other)
  Sender: FDA-Public Use
  Company Number: BR-TEVA-720484ROM

PATIENT
  Age: 81 Year
  Sex: Male
  Weight: 57 kg

DRUGS (3)
  1. FLUOROURACIL. [Concomitant]
     Active Substance: FLUOROURACIL
     Indication: OESOPHAGEAL CARCINOMA
     Route: 042
     Dates: start: 20160706
  2. TEVAOXALI [Suspect]
     Active Substance: OXALIPLATIN
     Indication: OESOPHAGEAL CARCINOMA
     Dosage: 110 MG/M2 DAILY;
     Route: 042
     Dates: start: 20160706
  3. FAULDLEUCO [Concomitant]
     Active Substance: LEUCOVORIN CALCIUM
     Indication: OESOPHAGEAL CARCINOMA
     Route: 042
     Dates: start: 20160706

REACTIONS (5)
  - Tremor [Recovered/Resolved]
  - Loss of consciousness [Recovered/Resolved]
  - Hypotonia [Recovered/Resolved]
  - Seizure [Recovered/Resolved]
  - Musculoskeletal stiffness [Recovered/Resolved]

NARRATIVE: CASE EVENT DATE: 20161206
